FAERS Safety Report 5990827-7 (Version None)
Quarter: 2008Q4

REPORT INFORMATION
  Report Type: 
  Country: None (occurrence: None)
  Receive Date: 20081202
  Receipt Date: 20080218
  Transmission Date: 20090506
  Serious: Yes (Other)
  Sender: FDA-Public Use
  Company Number: WAES 0802USA03899

PATIENT
  Age: 76 Year
  Sex: Male

DRUGS (6)
  1. FOSAMAX [Suspect]
     Indication: OSTEOPOROSIS
     Dosage: 70 MG/WKY/PO ; 10 MG;PO ; 5 MG;PO ; 70 MG;PO ; PO
     Route: 048
     Dates: start: 19990101, end: 20010101
  2. FOSAMAX [Suspect]
     Indication: OSTEOPOROSIS
     Dosage: 70 MG/WKY/PO ; 10 MG;PO ; 5 MG;PO ; 70 MG;PO ; PO
     Route: 048
     Dates: start: 19990101, end: 20010101
  3. FOSAMAX [Suspect]
     Indication: OSTEOPOROSIS
     Dosage: 70 MG/WKY/PO ; 10 MG;PO ; 5 MG;PO ; 70 MG;PO ; PO
     Route: 048
     Dates: start: 19990101, end: 20010101
  4. FOSAMAX [Suspect]
     Indication: OSTEOPOROSIS
     Dosage: 70 MG/WKY/PO ; 10 MG;PO ; 5 MG;PO ; 70 MG;PO ; PO
     Route: 048
     Dates: start: 19990101, end: 20060101
  5. FOSAMAX [Suspect]
     Indication: OSTEOPOROSIS
     Dosage: 70 MG/WKY/PO ; 10 MG;PO ; 5 MG;PO ; 70 MG;PO ; PO
     Route: 048
     Dates: start: 19980101, end: 20070226
  6. AVAPRO [Concomitant]

REACTIONS (4)
  - FRACTURE [None]
  - INAPPROPRIATE SCHEDULE OF DRUG ADMINISTRATION [None]
  - OSTEONECROSIS [None]
  - OVERDOSE [None]
